FAERS Safety Report 10041736 (Version 1)
Quarter: 2014Q1

REPORT INFORMATION
  Report Type: Spontaneous
  Country: US (occurrence: US)
  Receive Date: 20140327
  Receipt Date: 20140327
  Transmission Date: 20141002
  Serious: No
  Sender: FDA-Public Use
  Company Number: US-TEVA-471590USA

PATIENT
  Sex: Female
  Weight: 74.91 kg

DRUGS (5)
  1. PARAGARD 380A [Suspect]
     Indication: CONTRACEPTION
     Route: 015
  2. CYMBALTA [Concomitant]
     Indication: BIPOLAR DISORDER
  3. LAMOTRIGINE [Concomitant]
     Indication: BIPOLAR DISORDER
  4. LITHOBID [Concomitant]
     Indication: BIPOLAR DISORDER
  5. RISPERDAL [Concomitant]
     Indication: BIPOLAR DISORDER

REACTIONS (2)
  - Dysmenorrhoea [Not Recovered/Not Resolved]
  - Menorrhagia [Not Recovered/Not Resolved]
